FAERS Safety Report 6291102-6 (Version None)
Quarter: 2009Q3

REPORT INFORMATION
  Report Type: 
  Country: None (occurrence: None)
  Receive Date: 20090730
  Receipt Date: 20090723
  Transmission Date: 20100115
  Serious: Yes (Other)
  Sender: FDA-Public Use
  Company Number: A0798458A

PATIENT
  Age: 60 Year
  Sex: Female

DRUGS (2)
  1. VERAMYST [Suspect]
     Indication: NASAL POLYPECTOMY
     Dosage: 2SPR SINGLE DOSE
     Route: 045
     Dates: start: 20090618, end: 20090618
  2. QVAR 40 [Concomitant]

REACTIONS (2)
  - DEAFNESS [None]
  - EAR DISCOMFORT [None]
